FAERS Safety Report 18725268 (Version 12)
Quarter: 2022Q1

REPORT INFORMATION
  Report Type: Report from Study
  Country: CL (occurrence: CL)
  Receive Date: 20210111
  Receipt Date: 20220218
  Transmission Date: 20220423
  Serious: Yes (Life-Threatening, Other)
  Sender: FDA-Public Use
  Company Number: NVSC2020CL347958

PATIENT
  Age: 81 Year
  Sex: Female

DRUGS (9)
  1. KISQALI [Suspect]
     Active Substance: RIBOCICLIB
     Indication: Breast cancer
     Dosage: 600 MG, QD
     Route: 048
     Dates: start: 20201211
  2. KISQALI [Suspect]
     Active Substance: RIBOCICLIB
     Dosage: 400 MG, BID
     Route: 048
  3. KISQALI [Suspect]
     Active Substance: RIBOCICLIB
     Dosage: 400 MG, QD
     Route: 048
  4. KISQALI [Suspect]
     Active Substance: RIBOCICLIB
     Dosage: 200 MG, QD
     Route: 048
     Dates: start: 20201211
  5. KISQALI [Suspect]
     Active Substance: RIBOCICLIB
     Dosage: 600 MG
     Route: 065
     Dates: start: 2020
  6. KISQALI [Suspect]
     Active Substance: RIBOCICLIB
     Dosage: 200 MG, QD
     Route: 048
     Dates: start: 20201211
  7. KISQALI [Suspect]
     Active Substance: RIBOCICLIB
     Dosage: 200 MG, QD
     Route: 048
     Dates: start: 20201211
  8. FULVESTRANT [Suspect]
     Active Substance: FULVESTRANT
     Indication: Product used for unknown indication
     Dosage: UNKNOWN
     Route: 065
  9. ESOMEPRAZOLE [Concomitant]
     Active Substance: ESOMEPRAZOLE
     Indication: Product used for unknown indication
     Dosage: UNKNOWN
     Route: 065

REACTIONS (16)
  - Feeling abnormal [Not Recovered/Not Resolved]
  - Ventricular arrhythmia [Unknown]
  - Gastric disorder [Unknown]
  - Alopecia [Unknown]
  - Electrocardiogram abnormal [Unknown]
  - Pain [Not Recovered/Not Resolved]
  - Drug intolerance [Unknown]
  - Eating disorder [Not Recovered/Not Resolved]
  - Weight decreased [Recovering/Resolving]
  - Red blood cell count decreased [Unknown]
  - Malaise [Unknown]
  - Nasopharyngitis [Unknown]
  - Nausea [Unknown]
  - Vomiting [Unknown]
  - White blood cell count decreased [Recovering/Resolving]
  - Inappropriate schedule of product administration [Unknown]

NARRATIVE: CASE EVENT DATE: 20210106
